FAERS Safety Report 23047782 (Version 1)
Quarter: 2023Q4

REPORT INFORMATION
  Report Type: 
  Country: AU (occurrence: AU)
  Receive Date: 20231010
  Receipt Date: 20231010
  Transmission Date: 20240109
  Serious: Yes (Other)
  Sender: FDA-Public Use
  Company Number: AU-CELLTRION INC.-2023AU019243

PATIENT

DRUGS (2)
  1. RITUXIMAB [Suspect]
     Active Substance: RITUXIMAB
     Indication: Product used for unknown indication
  2. OFATUMUMAB [Suspect]
     Active Substance: OFATUMUMAB
     Indication: Product used for unknown indication

REACTIONS (13)
  - Chronic inflammatory demyelinating polyradiculoneuropathy [Unknown]
  - Sjogren^s syndrome [Unknown]
  - Polymyositis [Unknown]
  - Anaphylactic reaction [Unknown]
  - B-lymphocyte count increased [Unknown]
  - CD19 lymphocytes increased [Unknown]
  - Vertigo labyrinthine [Unknown]
  - Chillblains [Unknown]
  - Condition aggravated [Unknown]
  - Arthralgia [Unknown]
  - Asthenia [Unknown]
  - Headache [Unknown]
  - Myalgia [Unknown]
